FAERS Safety Report 17053696 (Version 1)
Quarter: 2019Q4

REPORT INFORMATION
  Report Type: Spontaneous
  Country: US (occurrence: US)
  Receive Date: 20191120
  Receipt Date: 20191120
  Transmission Date: 20200122
  Serious: Yes (Other)
  Sender: FDA-Public Use
  Company Number: None

PATIENT
  Age: 25 Year
  Sex: Female
  Weight: 99.45 kg

DRUGS (11)
  1. AXICABTAGENE CILOLEUCEL [Suspect]
     Active Substance: AXICABTAGENE CILOLEUCEL
     Indication: DIFFUSE LARGE B-CELL LYMPHOMA
     Dosage: ?          OTHER FREQUENCY:ONCE;?
     Route: 041
     Dates: start: 20190826, end: 20190826
  2. TRAMADOL. [Concomitant]
     Active Substance: TRAMADOL
     Dates: start: 20190901, end: 20190901
  3. VALACYCLOVIR [Concomitant]
     Active Substance: VALACYCLOVIR HYDROCHLORIDE
     Dates: start: 20190826, end: 20190909
  4. GUAIFENESIN. [Concomitant]
     Active Substance: GUAIFENESIN
     Dates: start: 20190905, end: 20190907
  5. SUPERSATURATED CALCIUM PHOSPHATE RINSE [Concomitant]
     Dates: start: 20190826, end: 20190908
  6. LORATADINE. [Concomitant]
     Active Substance: LORATADINE
     Dates: start: 20190831, end: 20190907
  7. TBO-FILGRSTIM [Concomitant]
     Dates: start: 20190831, end: 20190903
  8. POTASSIUM CHLORIDE. [Concomitant]
     Active Substance: POTASSIUM CHLORIDE
     Dates: start: 20190826, end: 20190906
  9. BUTALBITAL-ACETAMINOPHEN-CAFFEINE [Concomitant]
     Dates: start: 20190901, end: 20190907
  10. URSODIOL. [Concomitant]
     Active Substance: URSODIOL
     Dates: start: 20190826, end: 20190831
  11. VANCOMYCIN [Concomitant]
     Active Substance: VANCOMYCIN
     Dates: start: 20190906, end: 20190908

REACTIONS (1)
  - Cytokine release syndrome [None]

NARRATIVE: CASE EVENT DATE: 20190902
